FAERS Safety Report 4840420-4 (Version None)
Quarter: 2005Q4

REPORT INFORMATION
  Report Type: 
  Country: None (occurrence: None)
  Receive Date: 20051031
  Receipt Date: 20050628
  Transmission Date: 20060501
  Serious: Yes (Hospitalization)
  Sender: FDA-Public Use
  Company Number: 200515424US

PATIENT

DRUGS (3)
  1. KETEK [Suspect]
     Dosage: 800 MG
  2. LEXAPRO [Concomitant]
  3. INHALERS [Concomitant]

REACTIONS (1)
  - PANCREATITIS [None]
